FAERS Safety Report 4693690-X (Version None)
Quarter: 2005Q2

REPORT INFORMATION
  Report Type: 
  Country: None (occurrence: None)
  Receive Date: 20050615
  Receipt Date: 20050601
  Transmission Date: 20051028
  Serious: Yes (Hospitalization)
  Sender: FDA-Public Use
  Company Number: USA050187908

PATIENT
  Age: 61 Year
  Sex: Male

DRUGS (3)
  1. CYMBALTA [Suspect]
     Dosage: UNK
     Route: 048
  2. CARBIDOPA W/LEVODOPA [Concomitant]
  3. ZOCOR             (SIMVASTATIN RATIOPHARM) [Concomitant]

REACTIONS (6)
  - ANGIONEUROTIC OEDEMA [None]
  - BRONCHOSPASM [None]
  - DRUG HYPERSENSITIVITY [None]
  - DYSPNOEA [None]
  - INFECTION [None]
  - WHITE BLOOD CELL COUNT INCREASED [None]
